FAERS Safety Report 13298453 (Version 1)
Quarter: 2017Q1

REPORT INFORMATION
  Report Type: Spontaneous
  Country: GB (occurrence: GB)
  Receive Date: 20170306
  Receipt Date: 20170306
  Transmission Date: 20170428
  Serious: Yes (Disabling)
  Sender: FDA-Public Use
  Company Number: GB-TEVA-744533ACC

PATIENT
  Age: 81 Year
  Sex: Male
  Weight: 76.2 kg

DRUGS (7)
  1. ASPIRIN COATED [Concomitant]
     Active Substance: ASPIRIN
  2. NICORANDIL [Concomitant]
     Active Substance: NICORANDIL
  3. ALLOPURINOL. [Concomitant]
     Active Substance: ALLOPURINOL
  4. FELODIPINE. [Concomitant]
     Active Substance: FELODIPINE
  5. DOXAZOSIN [Concomitant]
     Active Substance: DOXAZOSIN\DOXAZOSIN MESYLATE
  6. METRONIDAZOLE. [Suspect]
     Active Substance: METRONIDAZOLE
     Indication: GINGIVITIS
     Dosage: 600 MILLIGRAM DAILY;
     Route: 048
     Dates: end: 20170202
  7. IVABRADINE [Concomitant]
     Active Substance: IVABRADINE

REACTIONS (1)
  - Dermatitis atopic [Not Recovered/Not Resolved]

NARRATIVE: CASE EVENT DATE: 20170203
